FAERS Safety Report 4812488-2 (Version None)
Quarter: 2005Q4

REPORT INFORMATION
  Report Type: 
  Country: None (occurrence: None)
  Receive Date: 20051028
  Receipt Date: 20050203
  Transmission Date: 20060501
  Serious: No
  Sender: FDA-Public Use
  Company Number: US-GLAXOSMITHKLINE-A0543996A

PATIENT
  Age: 53 Year
  Sex: Female
  Weight: 104.5 kg

DRUGS (9)
  1. ADVAIR DISKUS 100/50 [Suspect]
     Indication: ASTHMA
     Route: 055
  2. ACTIFED [Concomitant]
  3. TYLENOL (CAPLET) [Concomitant]
  4. ASCORBIC ACID [Concomitant]
  5. VITAMIN E [Concomitant]
  6. SELENIUM SULFIDE [Concomitant]
  7. BETA CAROTENE [Concomitant]
  8. CENTRUM [Concomitant]
  9. CALCIUM GLUCONATE [Concomitant]

REACTIONS (1)
  - COUGH [None]
